FAERS Safety Report 5060255-X (Version None)
Quarter: 2006Q3

REPORT INFORMATION
  Report Type: 
  Country: None (occurrence: None)
  Receive Date: 20060724
  Receipt Date: 20051021
  Transmission Date: 20061208
  Serious: Yes (Death, Other)
  Sender: FDA-Public Use
  Company Number: US-MERCK-0510USA09085

PATIENT
  Age: 74 Year
  Sex: Male

DRUGS (25)
  1. FOSAMAX [Suspect]
     Indication: BONE DISORDER
     Route: 048
  2. PAMIDRONATE DISODIUM [Concomitant]
     Indication: BONE DISORDER
     Route: 042
  3. ZOLEDRONATE DISODIUM [Concomitant]
     Indication: BONE DISORDER
     Route: 042
  4. LEUKINE [Concomitant]
     Indication: BONE DISORDER
     Route: 065
  5. ESTRADIOL [Concomitant]
     Route: 065
  6. ROSIGLITAZONE MALEATE [Concomitant]
     Route: 065
  7. CELECOXIB [Concomitant]
     Route: 065
  8. ISOTRETINOIN [Concomitant]
     Route: 065
  9. DUTASTERIDE [Concomitant]
     Route: 065
  10. LEUPROLIDE ACETATE [Concomitant]
     Route: 065
  11. DOXYCYCLINE [Concomitant]
     Route: 065
  12. ATORVASTATIN CALCIUM [Concomitant]
     Route: 065
  13. EPOETIN [Concomitant]
     Route: 065
  14. ESOMEPRAZOLE [Concomitant]
     Route: 065
  15. MAGNESIUM (UNSPECIFIED) [Concomitant]
     Route: 065
  16. PEG-INTRON [Concomitant]
     Route: 065
  17. ASPIRIN [Concomitant]
     Route: 065
  18. CALCIUM (UNSPECIFIED) [Concomitant]
     Route: 065
  19. UBIDECARENONE [Concomitant]
     Route: 065
  20. FOLIC ACID [Concomitant]
     Route: 065
  21. CAMELLIA SINENSIS [Concomitant]
     Route: 065
  22. VITAMIN E [Concomitant]
     Route: 065
  23. LYCOPENE [Concomitant]
     Route: 065
  24. [THERAPY UNSPECIFIED] [Concomitant]
     Route: 065
  25. SOYBEAN [Concomitant]
     Route: 065

REACTIONS (3)
  - DEATH [None]
  - OSTEOMYELITIS [None]
  - OSTEONECROSIS [None]
